FAERS Safety Report 20059974 (Version 1)
Quarter: 2021Q4

REPORT INFORMATION
  Report Type: Spontaneous
  Country: TR (occurrence: TR)
  Receive Date: 20211111
  Receipt Date: 20211111
  Transmission Date: 20220303
  Serious: Yes (Other)
  Sender: FDA-Public Use
  Company Number: TR-SA-SAC20211109001329

PATIENT
  Age: 5 Year
  Sex: Female

DRUGS (4)
  1. SABRIL [Suspect]
     Active Substance: VIGABATRIN
     Indication: Epilepsy
     Dosage: 1 DOSE IN THE MORNING AND 1.5 DOSES IN THE EVENING
     Route: 048
  2. SABRIL [Suspect]
     Active Substance: VIGABATRIN
     Dosage: INCREASED THE DOSE FROM 1.5 TO 2 IN THE EVENING
     Route: 048
  3. CLOBAZAM [Concomitant]
     Active Substance: CLOBAZAM
     Indication: Epilepsy
     Dosage: UNK
     Route: 048
  4. TOPAMAX [Concomitant]
     Active Substance: TOPIRAMATE
     Indication: Epilepsy
     Dosage: UNK
     Route: 048

REACTIONS (9)
  - Loss of consciousness [Recovered/Resolved]
  - Seizure [Unknown]
  - Pupil fixed [Unknown]
  - Psychomotor hyperactivity [Not Recovered/Not Resolved]
  - Fear [Unknown]
  - Screaming [Unknown]
  - Condition aggravated [Not Recovered/Not Resolved]
  - Drug ineffective [Unknown]
  - Therapeutic response unexpected [Unknown]
